FAERS Safety Report 24465541 (Version 1)
Quarter: 2024Q4

REPORT INFORMATION
  Report Type: Report from Study
  Country: MX (occurrence: MX)
  Receive Date: 20241018
  Receipt Date: 20241018
  Transmission Date: 20250115
  Serious: Yes (Other)
  Sender: SANDOZ
  Company Number: MX-SANDOZ-SDZ2023MX058793

PATIENT
  Age: 10 Year
  Sex: Female
  Weight: 17 kg

DRUGS (1)
  1. OMNITROPE [Suspect]
     Active Substance: SOMATROPIN
     Indication: Turner^s syndrome
     Dosage: 1 MG, QD
     Route: 058
     Dates: start: 202309

REACTIONS (4)
  - Upper limb fracture [Unknown]
  - Hand fracture [Unknown]
  - Injection site discomfort [Unknown]
  - Injection site pain [Unknown]

NARRATIVE: CASE EVENT DATE: 20231101
